FAERS Safety Report 10995696 (Version 1)
Quarter: 2015Q2

REPORT INFORMATION
  Report Type: Spontaneous
  Country: SE (occurrence: SE)
  Receive Date: 20150407
  Receipt Date: 20150407
  Transmission Date: 20150821
  Serious: Yes (Other)
  Sender: FDA-Public Use
  Company Number: SE-ELI_LILLY_AND_COMPANY-SE201403006813

PATIENT
  Age: 23 Year
  Sex: Female
  Weight: 79 kg

DRUGS (8)
  1. LORATADINE. [Concomitant]
     Active Substance: LORATADINE
     Dosage: UNK, UNKNOWN
     Route: 065
  2. SIMVASTATIN. [Concomitant]
     Active Substance: SIMVASTATIN
     Dosage: UNK, UNKNOWN
     Route: 065
  3. SAROTEN [Interacting]
     Active Substance: AMITRIPTYLINE
     Indication: PAIN
     Dosage: UNK, UNKNOWN
     Route: 065
     Dates: start: 201301, end: 201402
  4. ALVEDON [Concomitant]
     Active Substance: ACETAMINOPHEN
     Dosage: UNK, UNKNOWN
     Route: 065
  5. HUMALOG [Concomitant]
     Active Substance: INSULIN LISPRO
     Dosage: UNK, UNKNOWN
     Route: 065
  6. INSULATARD                         /00646002/ [Concomitant]
     Active Substance: INSULIN NOS
     Dosage: UNK, UNKNOWN
     Route: 065
  7. BRICANYL [Concomitant]
     Active Substance: TERBUTALINE SULFATE
     Dosage: UNK, UNKNOWN
     Route: 065
  8. CYMBALTA [Suspect]
     Active Substance: DULOXETINE HYDROCHLORIDE
     Indication: DEPRESSION
     Dosage: 30 MG, DAILY
     Route: 048
     Dates: start: 201111

REACTIONS (8)
  - Constipation [Not Recovered/Not Resolved]
  - Fatigue [Not Recovered/Not Resolved]
  - Menstrual disorder [Not Recovered/Not Resolved]
  - Infertility [Not Recovered/Not Resolved]
  - Drug interaction [Not Recovered/Not Resolved]
  - Dry mouth [Not Recovered/Not Resolved]
  - Anxiety [Not Recovered/Not Resolved]
  - Epistaxis [Not Recovered/Not Resolved]

NARRATIVE: CASE EVENT DATE: 201111
